FAERS Safety Report 17590138 (Version 1)
Quarter: 2020Q1

REPORT INFORMATION
  Report Type: Spontaneous
  Country: NL (occurrence: NL)
  Receive Date: 20200327
  Receipt Date: 20200327
  Transmission Date: 20200409
  Serious: Yes (Hospitalization)
  Sender: FDA-Public Use
  Company Number: NL-ACCORD-177213

PATIENT
  Age: 66 Year
  Sex: Male

DRUGS (5)
  1. OMEPRAZOLE. [Suspect]
     Active Substance: OMEPRAZOLE
     Indication: ABDOMINAL DISCOMFORT
     Dosage: 1X PER DAY 1 CAPSULE
     Dates: start: 20110921, end: 20200118
  2. FUROSEMIDE. [Suspect]
     Active Substance: FUROSEMIDE
     Indication: CARDIOVASCULAR DISORDER
     Dosage: 1X PER DAY 1 TABLET
     Dates: start: 20120704, end: 20200118
  3. CARVEDILOL. [Concomitant]
     Active Substance: CARVEDILOL
     Dosage: TABLET, 3,125 MG (MILLIGRAM)
  4. ATORVASTATIN [Concomitant]
     Active Substance: ATORVASTATIN
     Dosage: TABLET, 20 MG (MILLIGRAM)
  5. LOSARTAN. [Concomitant]
     Active Substance: LOSARTAN
     Dosage: FILMOMHULDE TABLET, 100 MG (MILLIGRAM)

REACTIONS (1)
  - Hypomagnesaemia [Recovered/Resolved]

NARRATIVE: CASE EVENT DATE: 20200117
